FAERS Safety Report 6500380-7 (Version None)
Quarter: 2009Q4

REPORT INFORMATION
  Report Type: 
  Country: None (occurrence: None)
  Receive Date: 20091216
  Receipt Date: 20091201
  Transmission Date: 20100525
  Serious: No
  Sender: FDA-Public Use
  Company Number: JP-ROCHE-674723

PATIENT
  Age: 8 Year
  Sex: Male
  Weight: 20 kg

DRUGS (4)
  1. TAMIFLU [Suspect]
     Indication: DRUG USE FOR UNKNOWN INDICATION
     Dosage: DRUG: TAMIFLU DRY SYRUP 3%(OSELTAMIVIR)
     Route: 048
     Dates: start: 20091130, end: 20091130
  2. TAMIFLU [Suspect]
     Route: 048
     Dates: start: 20091201, end: 20091201
  3. ASVERIN [Concomitant]
     Dosage: DRUG: ASVERIN(TIPEPIDINE HIBENZATE)
     Route: 048
  4. MUCOSOLVAN [Concomitant]
     Dosage: DRUG: MUCOSOLVAN(AMBROXOL HYDROCHLORIDE), DOSE FORM: ORAL FORMULATION (NOT OTHERWISE SPECIFIED)
     Route: 048

REACTIONS (1)
  - ACCIDENTAL OVERDOSE [None]
